FAERS Safety Report 13047363 (Version 1)
Quarter: 2016Q4

REPORT INFORMATION
  Report Type: Report from Study
  Country: CA (occurrence: CA)
  Receive Date: 20161220
  Receipt Date: 20161220
  Transmission Date: 20170207
  Serious: Yes (Other)
  Sender: FDA-Public Use
  Company Number: CA-HLSUS-2016-CA-000758

PATIENT
  Age: 50 Year
  Sex: Male
  Weight: 214 kg

DRUGS (1)
  1. CLOZARIL [Suspect]
     Active Substance: CLOZAPINE
     Route: 048
     Dates: start: 20090324

REACTIONS (5)
  - Myocardial infarction [Unknown]
  - QRS axis abnormal [Unknown]
  - Bundle branch block right [Unknown]
  - Electrocardiogram ST segment abnormal [Unknown]
  - Electrocardiogram QT prolonged [Unknown]

NARRATIVE: CASE EVENT DATE: 20161209
